FAERS Safety Report 7560378-7 (Version None)
Quarter: 2011Q2

REPORT INFORMATION
  Report Type: 
  Country: None (occurrence: None)
  Receive Date: 20110621
  Receipt Date: 20110616
  Transmission Date: 20111010
  Serious: Yes (Hospitalization, Other)
  Sender: FDA-Public Use
  Company Number: FR-ABBOTT-11P-056-0733058-00

PATIENT
  Age: 48 Year
  Sex: Male

DRUGS (5)
  1. NORVIR [Suspect]
     Indication: HIV INFECTION
     Route: 048
     Dates: start: 20110302
  2. TRUVADA [Suspect]
     Indication: HIV INFECTION
     Dosage: 200 MG/245 MG
     Route: 048
     Dates: start: 20090217, end: 20110301
  3. ETRAVIRINE [Suspect]
     Indication: HIV INFECTION
     Dosage: 400 MG DAILY
     Route: 048
     Dates: start: 20110302
  4. DARUNAVIR ETHANOLATE [Suspect]
     Indication: HIV INFECTION
     Route: 048
     Dates: start: 20110302
  5. RALTEGRAVIR [Suspect]
     Indication: HIV INFECTION
     Dosage: UNKNOWN
     Route: 048
     Dates: start: 20090217, end: 20110301

REACTIONS (5)
  - ASTHENIA [None]
  - SEXUAL DYSFUNCTION [None]
  - DIABETES MELLITUS [None]
  - VISUAL IMPAIRMENT [None]
  - POLYURIA [None]
